APPROVED DRUG PRODUCT: ROGAINE (FOR WOMEN)
Active Ingredient: MINOXIDIL
Strength: 2%
Dosage Form/Route: SOLUTION;TOPICAL
Application: N019501 | Product #003
Applicant: KENVUE BRANDS LLC
Approved: Feb 9, 1996 | RLD: Yes | RS: Yes | Type: OTC